FAERS Safety Report 25648118 (Version 1)
Quarter: 2025Q3

REPORT INFORMATION
  Report Type: Spontaneous
  Country: EU (occurrence: EU)
  Receive Date: 20250806
  Receipt Date: 20250806
  Transmission Date: 20251020
  Serious: Yes (Other)
  Sender: CELLTRION
  Company Number: EU-ROCHE-10000280151

PATIENT

DRUGS (2)
  1. RITUXIMAB [Suspect]
     Active Substance: RITUXIMAB
     Indication: Myasthenia gravis
     Route: 065
  2. PREDNISONE [Suspect]
     Active Substance: PREDNISONE
     Indication: Product used for unknown indication
     Route: 065
     Dates: start: 202306

REACTIONS (7)
  - Myasthenia gravis [Unknown]
  - Stress [Unknown]
  - Weight increased [Unknown]
  - Vision blurred [Unknown]
  - Erythema [Unknown]
  - Asthenia [Unknown]
  - Intentional product use issue [Unknown]
